FAERS Safety Report 6911875-6 (Version None)
Quarter: 2010Q3

REPORT INFORMATION
  Report Type: 
  Country: None (occurrence: None)
  Receive Date: 20100806
  Receipt Date: 20071017
  Transmission Date: 20110219
  Serious: No
  Sender: FDA-Public Use
  Company Number: US-PFIZER INC-2007040172

PATIENT
  Sex: Female
  Weight: 63.5 kg

DRUGS (2)
  1. DILANTIN [Suspect]
     Indication: CONVULSION
     Dosage: EVERYDAY
  2. PHENOBARBITAL [Concomitant]

REACTIONS (2)
  - ANTICONVULSANT DRUG LEVEL BELOW THERAPEUTIC [None]
  - DYSGEUSIA [None]
